FAERS Safety Report 8013739-6 (Version None)
Quarter: 2011Q4

REPORT INFORMATION
  Report Type: 
  Country: None (occurrence: None)
  Receive Date: 20111229
  Receipt Date: 20111219
  Transmission Date: 20120403
  Serious: Yes (Hospitalization, Other)
  Sender: FDA-Public Use
  Company Number: US-ELI_LILLY_AND_COMPANY-US201111005032

PATIENT
  Sex: Female

DRUGS (11)
  1. ACIPHEX [Concomitant]
     Dosage: 1 DF, QD
     Route: 048
  2. ANTACID                            /00108001/ [Concomitant]
  3. CALCIUM ACETATE [Concomitant]
     Dosage: 1 DF, QD
     Route: 048
  4. MULTI-VITAMIN [Concomitant]
     Dosage: 1 DF, QD
     Route: 048
  5. LIPITOR [Concomitant]
     Dosage: 1 DF, QD
     Route: 048
  6. FLUDROCORTISONE ACETATE [Concomitant]
     Dosage: 0.1 MG, QD
     Route: 048
  7. FORTEO [Suspect]
     Dosage: 20 UG, QD
  8. ASPIRIN [Concomitant]
  9. FORTEO [Suspect]
     Indication: OSTEOPOROSIS
     Dosage: 20 UG, QD
     Dates: start: 20090901
  10. VITAMIN D [Concomitant]
     Dosage: 1 DF, QD
     Route: 048
  11. MIRALAX [Concomitant]

REACTIONS (3)
  - HYPOAESTHESIA [None]
  - HIP FRACTURE [None]
  - FALL [None]
